FAERS Safety Report 16041034 (Version 1)
Quarter: 2019Q1

REPORT INFORMATION
  Report Type: Spontaneous
  Country: US (occurrence: US)
  Receive Date: 20190306
  Receipt Date: 20190306
  Transmission Date: 20190418
  Serious: No
  Sender: FDA-Public Use
  Company Number: US-AKORN PHARMACEUTICALS-2018AKN01334

PATIENT
  Age: 15 Year
  Sex: Male
  Weight: 126.98 kg

DRUGS (4)
  1. MYORISAN [Suspect]
     Active Substance: ISOTRETINOIN
     Indication: ACNE CYSTIC
     Dosage: 20 MG, 1X/DAY
     Route: 048
     Dates: start: 20180417, end: 20180725
  2. MYORISAN [Suspect]
     Active Substance: ISOTRETINOIN
     Indication: HIDRADENITIS
  3. MYORISAN [Suspect]
     Active Substance: ISOTRETINOIN
     Indication: ACNE CYSTIC
     Dosage: UNK
     Dates: start: 20180625, end: 20180725
  4. MYORISAN [Suspect]
     Active Substance: ISOTRETINOIN
     Indication: HIDRADENITIS

REACTIONS (6)
  - Blood triglycerides increased [Recovered/Resolved]
  - Off label use [Recovered/Resolved]
  - Drug ineffective [Recovered/Resolved]
  - Alanine aminotransferase increased [Recovered/Resolved]
  - Aspartate aminotransferase increased [Recovered/Resolved]
  - Blood cholesterol increased [Recovered/Resolved]

NARRATIVE: CASE EVENT DATE: 2018
